FAERS Safety Report 14894396 (Version 3)
Quarter: 2018Q3

REPORT INFORMATION
  Report Type: Report from Study
  Country: None (occurrence: US)
  Receive Date: 20180515
  Receipt Date: 20180716
  Transmission Date: 20181010
  Serious: Yes (Hospitalization)
  Sender: FDA-Public Use
  Company Number: US-ABBVIE-18K-163-2341797-00

PATIENT
  Age: 62 Year
  Sex: Male

DRUGS (3)
  1. HUMIRA [Suspect]
     Active Substance: ADALIMUMAB
     Indication: COLITIS ULCERATIVE
     Dosage: DAY 1
     Route: 058
     Dates: start: 20180420, end: 20180420
  2. HUMIRA [Suspect]
     Active Substance: ADALIMUMAB
     Dosage: DAY 29
     Route: 058
     Dates: start: 20180518
  3. HUMIRA [Suspect]
     Active Substance: ADALIMUMAB
     Indication: CROHN^S DISEASE
     Dosage: DAY 15
     Route: 058
     Dates: start: 20180504, end: 20180504

REACTIONS (29)
  - Fatigue [Recovering/Resolving]
  - Tongue ulceration [Recovering/Resolving]
  - Chills [Not Recovered/Not Resolved]
  - Insomnia [Not Recovered/Not Resolved]
  - Haematochezia [Recovering/Resolving]
  - Abdominal pain upper [Not Recovered/Not Resolved]
  - Laryngeal ulceration [Unknown]
  - Blood glucose decreased [Unknown]
  - Diarrhoea [Not Recovered/Not Resolved]
  - Aphasia [Recovered/Resolved]
  - Diarrhoea [Recovered/Resolved]
  - Rectal haemorrhage [Not Recovered/Not Resolved]
  - Decreased appetite [Not Recovered/Not Resolved]
  - Malaise [Unknown]
  - Depressed mood [Recovering/Resolving]
  - Abnormal faeces [Recovering/Resolving]
  - Frequent bowel movements [Unknown]
  - Weight decreased [Not Recovered/Not Resolved]
  - Hyperhidrosis [Unknown]
  - Blood glucose increased [Recovering/Resolving]
  - Fungal infection [Unknown]
  - Joint swelling [Not Recovered/Not Resolved]
  - Defaecation urgency [Unknown]
  - Bacterial infection [Unknown]
  - Laryngitis [Unknown]
  - Nausea [Not Recovered/Not Resolved]
  - Cough [Unknown]
  - Loss of personal independence in daily activities [Not Recovered/Not Resolved]
  - Diarrhoea [Unknown]

NARRATIVE: CASE EVENT DATE: 2018
